FAERS Safety Report 20804578 (Version 2)
Quarter: 2022Q2

REPORT INFORMATION
  Report Type: Spontaneous
  Country: FI (occurrence: FI)
  Receive Date: 20220509
  Receipt Date: 20220613
  Transmission Date: 20220721
  Serious: Yes (Hospitalization, Other)
  Sender: FDA-Public Use
  Company Number: FI-ELI_LILLY_AND_COMPANY-FI202204011562

PATIENT
  Age: 84 Year
  Sex: Female
  Weight: 75 kg

DRUGS (5)
  1. ABEMACICLIB [Suspect]
     Active Substance: ABEMACICLIB
     Indication: Breast cancer metastatic
     Dosage: 150 MG, BID
     Route: 048
     Dates: start: 20220103, end: 20220118
  2. ABEMACICLIB [Suspect]
     Active Substance: ABEMACICLIB
     Dosage: 100 MG, BID
     Route: 048
     Dates: start: 20220201, end: 20220217
  3. FULVESTRANT STADA [Concomitant]
     Indication: Breast cancer metastatic
     Dosage: 500 MG, MONTHLY (1/M)
     Route: 030
     Dates: start: 20211231
  4. FULVESTRANT STADA [Concomitant]
     Dosage: 500 MG, MONTHLY (1/M)
     Route: 030
     Dates: start: 20220103
  5. FULVESTRANT STADA [Concomitant]
     Dosage: 500 MG, EVERY TWO WEEKS
     Route: 030
     Dates: start: 20220117, end: 20220117

REACTIONS (13)
  - Primary biliary cholangitis [Recovered/Resolved]
  - Blood alkaline phosphatase increased [Unknown]
  - Blood bilirubin increased [Unknown]
  - Malignant neoplasm progression [Unknown]
  - Alanine aminotransferase increased [Unknown]
  - Clostridium difficile infection [Unknown]
  - Urinary tract infection [Unknown]
  - Infection [Unknown]
  - Dehydration [Unknown]
  - Hypokalaemia [Unknown]
  - Constipation [Unknown]
  - Blood creatinine increased [Unknown]
  - Diarrhoea [Unknown]

NARRATIVE: CASE EVENT DATE: 20220116
